FAERS Safety Report 19227822 (Version 1)
Quarter: 2021Q2

REPORT INFORMATION
  Report Type: Spontaneous
  Country: US (occurrence: US)
  Receive Date: 20210506
  Receipt Date: 20210506
  Transmission Date: 20210717
  Serious: No
  Sender: FDA-Public Use
  Company Number: US-ROCHE-2696883

PATIENT
  Sex: Male

DRUGS (2)
  1. ESBRIET [Suspect]
     Active Substance: PIRFENIDONE
     Indication: PRODUCT USED FOR UNKNOWN INDICATION
     Dosage: 1 CAPSULE 3 TIMES DAILY FOR 1 MONTH
     Route: 048
     Dates: start: 202010
  2. ESBRIET [Suspect]
     Active Substance: PIRFENIDONE
     Dosage: THEN 2 CAPSULES 3 TIMES DAILY THEREAFTER
     Route: 048

REACTIONS (3)
  - No adverse event [Unknown]
  - Intentional product misuse [Unknown]
  - Off label use [Unknown]
